FAERS Safety Report 23836728 (Version 1)
Quarter: 2024Q2

REPORT INFORMATION
  Report Type: Spontaneous
  Country: US (occurrence: US)
  Receive Date: 20240509
  Receipt Date: 20240509
  Transmission Date: 20240715
  Serious: No
  Sender: FDA-Public Use
  Company Number: US-MYLANLABS-2024M1039842

PATIENT

DRUGS (1)
  1. WIXELA INHUB [Suspect]
     Active Substance: FLUTICASONE PROPIONATE\SALMETEROL XINAFOATE
     Indication: Asthma
     Dosage: 250/50 MILLIGRAM, BID (TWICE A DAY)
     Route: 055

REACTIONS (4)
  - Dizziness [Unknown]
  - Vertigo [Unknown]
  - Product substitution issue [Unknown]
  - Therapeutic response decreased [Unknown]
